FAERS Safety Report 10155793 (Version 1)
Quarter: 2014Q2

REPORT INFORMATION
  Report Type: Spontaneous
  Country: DK (occurrence: DK)
  Receive Date: 20140506
  Receipt Date: 20140506
  Transmission Date: 20141212
  Serious: Yes (Hospitalization)
  Sender: FDA-Public Use
  Company Number: DK-BRISTOL-MYERS SQUIBB COMPANY-20681458

PATIENT
  Age: 19 Year
  Sex: Male

DRUGS (4)
  1. ETOPOSIDE [Suspect]
     Indication: TESTIS CANCER
     Dosage: UNK
     Route: 042
     Dates: start: 20140309, end: 20140314
  2. CISPLATIN [Suspect]
     Indication: TESTIS CANCER
     Dosage: UNK
     Route: 042
     Dates: start: 20140309, end: 20140314
  3. BLEOMYCIN SULFATE [Suspect]
     Indication: TESTIS CANCER
     Dosage: UNK
     Route: 042
     Dates: start: 20140309, end: 20140314
  4. NEULASTA [Suspect]
     Indication: PRODUCT USED FOR UNKNOWN INDICATION
     Dosage: 6 MG, UNK
     Route: 042
     Dates: start: 20140315, end: 20140315

REACTIONS (4)
  - Nausea [Recovered/Resolved]
  - Vomiting [Recovered/Resolved]
  - Ocular hyperaemia [Recovered/Resolved]
  - Drug administration error [Unknown]
